FAERS Safety Report 9918413 (Version 2)
Quarter: 2014Q1

REPORT INFORMATION
  Report Type: Spontaneous
  Country: US (occurrence: US)
  Receive Date: 20140224
  Receipt Date: 20140310
  Transmission Date: 20141002
  Serious: No
  Sender: FDA-Public Use
  Company Number: US-BIOGENIDEC-2014BI016616

PATIENT
  Sex: Female

DRUGS (1)
  1. AVONEX [Suspect]
     Indication: MULTIPLE SCLEROSIS
     Route: 030
     Dates: start: 19971222

REACTIONS (11)
  - Sinus disorder [Unknown]
  - Mobility decreased [Not Recovered/Not Resolved]
  - Hyperaesthesia [Not Recovered/Not Resolved]
  - Dry skin [Not Recovered/Not Resolved]
  - Headache [Recovered/Resolved]
  - Hypersensitivity [Unknown]
  - Dizziness [Recovered/Resolved]
  - Suicidal ideation [Unknown]
  - Influenza like illness [Recovered/Resolved]
  - Rash [Not Recovered/Not Resolved]
  - Pain [Not Recovered/Not Resolved]
